FAERS Safety Report 24897908 (Version 1)
Quarter: 2025Q1

REPORT INFORMATION
  Report Type: Spontaneous
  Country: CN (occurrence: CN)
  Receive Date: 20250129
  Receipt Date: 20250129
  Transmission Date: 20250409
  Serious: Yes (Disabling)
  Sender: TAKEDA
  Company Number: CN-HUTCHMED LIMITED-HMP2025CN00159

PATIENT
  Age: 67 Year
  Sex: Female

DRUGS (2)
  1. FRUQUINTINIB [Suspect]
     Active Substance: FRUQUINTINIB
     Indication: Neoplasm malignant
     Dosage: 3 MILLIGRAM, QD
     Dates: start: 20240608, end: 20250122
  2. SINTILIMAB [Concomitant]
     Active Substance: SINTILIMAB
     Indication: Neoplasm malignant
     Dates: start: 20240608, end: 20250122

REACTIONS (2)
  - Skin papilloma [Recovering/Resolving]
  - Asthenia [Unknown]

NARRATIVE: CASE EVENT DATE: 20250101
